FAERS Safety Report 24379834 (Version 1)
Quarter: 2024Q3

REPORT INFORMATION
  Report Type: Spontaneous
  Country: US (occurrence: US)
  Receive Date: 20240930
  Receipt Date: 20240930
  Transmission Date: 20241016
  Serious: No
  Sender: PFIZER
  Company Number: US-PFIZER INC-PV202400112986

PATIENT
  Age: 71 Year
  Sex: Female

DRUGS (1)
  1. METOPROLOL TARTRATE [Suspect]
     Active Substance: METOPROLOL TARTRATE
     Indication: Hypertension
     Dosage: UNK
     Dates: end: 202102

REACTIONS (9)
  - Contraindicated product administered [Unknown]
  - Off label use [Unknown]
  - Headache [Unknown]
  - Heart rate increased [Unknown]
  - Decreased appetite [Unknown]
  - Cough [Unknown]
  - Wheezing [Unknown]
  - Fatigue [Unknown]
  - Amnesia [Unknown]
